FAERS Safety Report 5269865-8 (Version None)
Quarter: 2007Q1

REPORT INFORMATION
  Report Type: 
  Country: None (occurrence: None)
  Receive Date: 20070320
  Receipt Date: 20070312
  Transmission Date: 20070707
  Serious: Yes (Other)
  Sender: FDA-Public Use
  Company Number: GB-GLAXOSMITHKLINE-B0459475A

PATIENT
  Age: 38 Year
  Sex: Male

DRUGS (10)
  1. LAMIVUDINE [Suspect]
     Indication: HEPATITIS B
     Route: 065
  2. ASPIRIN [Suspect]
     Indication: DRUG USE FOR UNKNOWN INDICATION
     Route: 065
  3. ATENOLOL [Suspect]
     Indication: HYPERTENSION
     Route: 065
  4. ATORVASTATIN CALCIUM [Suspect]
     Indication: DRUG USE FOR UNKNOWN INDICATION
     Route: 065
  5. CELLCEPT [Suspect]
     Dosage: 500MG TWICE PER DAY
     Route: 048
     Dates: start: 20020615, end: 20060315
  6. DOXAZOSIN MESYLATE [Suspect]
     Indication: DRUG USE FOR UNKNOWN INDICATION
     Route: 065
  7. ISONIAZID [Suspect]
     Indication: DRUG USE FOR UNKNOWN INDICATION
     Route: 065
  8. NEORAL [Suspect]
     Dosage: 100MG TWICE PER DAY
     Route: 065
     Dates: start: 20000101
  9. PERINDOPRIL ERBUMINE [Suspect]
     Indication: HYPERTENSION
     Route: 065
  10. PYRIDOXINE HCL [Suspect]
     Indication: DRUG USE FOR UNKNOWN INDICATION
     Route: 065

REACTIONS (1)
  - SPERMATOZOA PROGRESSIVE MOTILITY DECREASED [None]
